FAERS Safety Report 20422138 (Version 1)
Quarter: 2022Q1

REPORT INFORMATION
  Report Type: Spontaneous
  Country: US (occurrence: None)
  Receive Date: 20220203
  Receipt Date: 20220203
  Transmission Date: 20220423
  Serious: Yes (Other)
  Sender: FDA-Public Use
  Company Number: 2022A050747

PATIENT
  Age: 19402 Day
  Sex: Female
  Weight: 73.5 kg

DRUGS (3)
  1. FASENRA [Suspect]
     Active Substance: BENRALIZUMAB
     Indication: Asthma
     Dosage: 30.0MG UNKNOWN
     Route: 058
  2. DALIRESP [Suspect]
     Active Substance: ROFLUMILAST
     Route: 048
  3. ALBUTEROL [Concomitant]
     Active Substance: ALBUTEROL

REACTIONS (9)
  - Neoplasm malignant [Unknown]
  - Chronic obstructive pulmonary disease [Not Recovered/Not Resolved]
  - COVID-19 pneumonia [Unknown]
  - Supraventricular tachycardia [Unknown]
  - Supraventricular extrasystoles [Unknown]
  - Sinus arrhythmia [Unknown]
  - COVID-19 [Unknown]
  - Cartilage injury [Unknown]
  - Mental disorder [Unknown]

NARRATIVE: CASE EVENT DATE: 20220117
